FAERS Safety Report 10076685 (Version 1)
Quarter: 2014Q2

REPORT INFORMATION
  Report Type: Spontaneous
  Country: US (occurrence: US)
  Receive Date: 20140414
  Receipt Date: 20140414
  Transmission Date: 20141212
  Serious: Yes (Other)
  Sender: FDA-Public Use
  Company Number: US-TEVA-474439USA

PATIENT
  Age: 66 Year
  Sex: Male
  Weight: 124.85 kg

DRUGS (19)
  1. PROAIR HFA [Suspect]
     Indication: ASTHMA
  2. CEFTIN [Suspect]
  3. SYNTHROID [Concomitant]
     Indication: HYPOTHYROIDISM
     Dosage: 225 MICROGRAM DAILY;
     Route: 048
  4. LIPITOR [Concomitant]
     Indication: BLOOD CHOLESTEROL INCREASED
     Dosage: 20 MILLIGRAM DAILY;
     Route: 048
  5. FENOFIBRATE [Concomitant]
     Indication: BLOOD CHOLESTEROL INCREASED
     Dosage: 200 MILLIGRAM DAILY;
  6. BENICAR [Concomitant]
     Indication: HYPERTENSION
     Dosage: 40 MILLIGRAM DAILY;
     Route: 048
  7. HYDROCORTISONE [Concomitant]
     Indication: HYPOTHALAMO-PITUITARY DISORDER
     Dosage: Q AM
  8. HYDROCORTISONE [Concomitant]
     Dosage: Q PM
  9. VITAMIN D [Concomitant]
     Indication: VITAMIN SUPPLEMENTATION
  10. DEXILANT LA [Concomitant]
     Indication: BARRETT^S OESOPHAGUS
     Dosage: 60 MILLIGRAM DAILY;
     Route: 048
  11. NIACIN [Concomitant]
     Indication: LIPIDS ABNORMAL
     Dosage: 500 MILLIGRAM DAILY;
     Route: 048
  12. FINASTERIDE [Concomitant]
     Indication: BENIGN PROSTATIC HYPERPLASIA
     Dosage: 5 MILLIGRAM DAILY;
     Route: 048
  13. SINGULAIR [Concomitant]
     Indication: ASTHMA
     Dosage: 10 MILLIGRAM DAILY;
     Route: 048
  14. CABERGOLINE [Concomitant]
     Indication: BLOOD PROLACTIN DECREASED
     Route: 048
  15. DELETESTROL [Concomitant]
     Indication: BLOOD TESTOSTERONE DECREASED
     Route: 030
  16. HUMATROPE [Concomitant]
     Indication: HYPOTHALAMO-PITUITARY DISORDER
     Dosage: 35 IU (INTERNATIONAL UNIT) DAILY;
     Route: 058
  17. VITAMIN B12 [Concomitant]
     Indication: VITAMIN SUPPLEMENTATION
     Dosage: 1000 MICROGRAM DAILY;
  18. CALCIUM WITH D [Concomitant]
     Indication: VITAMIN SUPPLEMENTATION
  19. MULTIVITAMIN [Concomitant]
     Indication: VITAMIN SUPPLEMENTATION

REACTIONS (11)
  - Palpitations [Not Recovered/Not Resolved]
  - Heart rate increased [Not Recovered/Not Resolved]
  - Pyrexia [Recovered/Resolved]
  - Dyspnoea [Not Recovered/Not Resolved]
  - Wheezing [Not Recovered/Not Resolved]
  - Fatigue [Not Recovered/Not Resolved]
  - Bronchitis [Not Recovered/Not Resolved]
  - Diarrhoea [Recovered/Resolved]
  - Expired product administered [Unknown]
  - Flushing [Not Recovered/Not Resolved]
  - Erythema [Not Recovered/Not Resolved]
